FAERS Safety Report 9650698 (Version 1)
Quarter: 2013Q4

REPORT INFORMATION
  Report Type: Spontaneous
  Country: CA (occurrence: CA)
  Receive Date: 20131029
  Receipt Date: 20131029
  Transmission Date: 20140711
  Serious: Yes (Death, Hospitalization)
  Sender: FDA-Public Use
  Company Number: CA-ROCHE-1292914

PATIENT
  Age: 65 Year
  Sex: Female
  Weight: 73.09 kg

DRUGS (16)
  1. HERCEPTIN [Suspect]
     Indication: PRODUCT USED FOR UNKNOWN INDICATION
     Route: 042
  2. HERCEPTIN [Suspect]
     Route: 042
  3. HERCEPTIN [Suspect]
     Route: 042
  4. DOCETAXEL [Suspect]
     Indication: PRODUCT USED FOR UNKNOWN INDICATION
     Route: 042
  5. CRESTOR [Concomitant]
     Route: 065
  6. DIAMICRON [Concomitant]
     Route: 065
  7. DOMPERIDONE [Concomitant]
     Route: 065
  8. HYDROMORPHONE [Concomitant]
  9. LYRICA [Concomitant]
     Route: 065
  10. METFORMIN [Concomitant]
     Route: 065
  11. NYSTATIN [Concomitant]
  12. PREVACID [Concomitant]
  13. PROCHLORPERAZINE [Concomitant]
  14. SYNTHROID [Concomitant]
  15. ZOFRAN [Concomitant]
  16. DIAMICRON [Concomitant]

REACTIONS (7)
  - Asthenia [Fatal]
  - Dehydration [Fatal]
  - Epistaxis [Fatal]
  - Febrile neutropenia [Fatal]
  - Infection [Fatal]
  - Oedema [Fatal]
  - Staphylococcal sepsis [Fatal]
